FAERS Safety Report 7498578-7 (Version None)
Quarter: 2011Q2

REPORT INFORMATION
  Report Type: 
  Country: None (occurrence: None)
  Receive Date: 20110524
  Receipt Date: 20110510
  Transmission Date: 20111010
  Serious: Yes (Other)
  Sender: FDA-Public Use
  Company Number: FR-EISAI INC-E3810-04459-SPO-FR

PATIENT
  Sex: Female
  Weight: 55 kg

DRUGS (2)
  1. EVISTA [Concomitant]
     Route: 048
     Dates: start: 20070101
  2. RABEPRAZOLE SODIUM [Suspect]
     Indication: GASTROOESOPHAGEAL REFLUX DISEASE
     Route: 048
     Dates: start: 20110107, end: 20110117

REACTIONS (8)
  - MOUTH HAEMORRHAGE [None]
  - STOMATITIS [None]
  - OROPHARYNGEAL PAIN [None]
  - HEADACHE [None]
  - PHARYNGITIS [None]
  - DRUG HYPERSENSITIVITY [None]
  - ORAL PAIN [None]
  - PYREXIA [None]
